FAERS Safety Report 6969574-0 (Version None)
Quarter: 2010Q3

REPORT INFORMATION
  Report Type: 
  Country: None (occurrence: None)
  Receive Date: 20100907
  Receipt Date: 20100907
  Transmission Date: 20110219
  Serious: Yes (Hospitalization)
  Sender: FDA-Public Use
  Company Number: None

PATIENT
  Age: 85 Year
  Sex: Female
  Weight: 56.6996 kg

DRUGS (1)
  1. SALONPAS [Suspect]
     Indication: ARTHRALGIA
     Dosage: 1 PATCH EVERY 4 HOURS TOP
     Route: 061
     Dates: start: 20100714, end: 20100808

REACTIONS (9)
  - ASTHENIA [None]
  - BLOOD POTASSIUM INCREASED [None]
  - DECREASED APPETITE [None]
  - GAIT DISTURBANCE [None]
  - MALAISE [None]
  - NEOPLASM MALIGNANT [None]
  - OVERDOSE [None]
  - RENAL FAILURE [None]
  - THIRST [None]
